FAERS Safety Report 18285762 (Version 1)
Quarter: 2020Q3

REPORT INFORMATION
  Report Type: Spontaneous
  Country: NL (occurrence: NL)
  Receive Date: 20200919
  Receipt Date: 20200919
  Transmission Date: 20201103
  Serious: Yes (Other)
  Sender: FDA-Public Use
  Company Number: NL-TEVA-2020-NL-1828366

PATIENT
  Age: 72 Year
  Sex: Female
  Weight: 57 kg

DRUGS (7)
  1. SIMVASTATINE TABLET FO 10MG / SIMVASTATINUM TABLET FILMOMHULD 10MG ? N [Concomitant]
     Dosage: 10 MILLIGRAM DAILY; 1DD1:THERAPY START DATE:ASKED BUT UNKNOWN:THERAPY END DATE :ASKED BUT UNKNOWN
  2. ACETYLSALICYLZUUR DISPERTABLET 80MG / ACIDUM ACETYLSALICYLICUM CARDIO [Concomitant]
     Dosage: 80 MILLIGRAM DAILY; 1DD1:THERAPY START DATE:ASKED BUT UNKNOWN:THERAPY END DATE :ASKED BUT UNKNOWN
  3. ATENOLOL AND CHLORTALIDONEATENOLOL/CHLOORTALIDON TABLET 100/25MG / ATE [Suspect]
     Active Substance: ATENOLOL\CHLORTHALIDONE
     Dosage: 1 DOSAGE FORMS DAILY; 1DD1:THERAPY END DATE :ASKED BUT UNKNOWN
     Dates: start: 20031209
  4. METOPROLOL TABLET  100MG / METOPROLOLI TARTRAS TABLET 100MG ? NON?CURR [Concomitant]
     Dosage: 100 MILLIGRAM DAILY; 1DD1:THERAPY START DATE:ASKED BUT UNKNOWN:THERAPY END DATE :ASKED BUT UNKNOWN
  5. DEXTRAN 70/HYPROMELLOSE OOGDR 1/3MG/ML / DURATEARS OOGDRUPPELS FLACON [Concomitant]
     Dosage: IF NECESSARY:UNIT DOSE:1DOSAGEFORM:THERAPY START DATE:ASKED BUT UNKNOWN:THERAPY END DATE :ASKED BUT
  6. LOSARTAN TABLET FO  50MG / COZAAR TABLET FILMOMHULD  50MG [Concomitant]
     Dosage: 50 MILLIGRAM DAILY; 1DD1:THERAPY START DATE:ASKED BUT UNKNOWN:THERAPY END DATE :ASKED BUT UNKNOWN
  7. TRETINOINE/TOCOFEROL CREME [Concomitant]
     Dosage: 1 DOSAGE FORMS DAILY; APPLY IN THE EVENING:THERAPY START DATE:ASKED BUT UNKNOWN:THERAPY END DATE :AS

REACTIONS (2)
  - Peripheral ischaemia [Recovered/Resolved]
  - Skin necrosis [Recovered/Resolved]

NARRATIVE: CASE EVENT DATE: 20031225
